FAERS Safety Report 10471243 (Version 8)
Quarter: 2015Q2

REPORT INFORMATION
  Report Type: Spontaneous
  Country: JP (occurrence: JP)
  Receive Date: 20140923
  Receipt Date: 20150625
  Transmission Date: 20150821
  Serious: Yes (Hospitalization)
  Sender: FDA-Public Use
  Company Number: PHHY2014JP119893

PATIENT
  Age: 64 Year
  Sex: Male

DRUGS (2)
  1. CLOZARIL [Suspect]
     Active Substance: CLOZAPINE
     Route: 048
     Dates: start: 20140924, end: 20150113
  2. CLOZARIL [Suspect]
     Active Substance: CLOZAPINE
     Indication: SCHIZOPHRENIA
     Route: 048
     Dates: start: 20140716, end: 20140908

REACTIONS (15)
  - Somnolence [Unknown]
  - Pyrexia [Recovered/Resolved]
  - Respiratory disorder [Recovered/Resolved]
  - Status epilepticus [Recovered/Resolved]
  - Seizure [Recovered/Resolved]
  - Joint warmth [Recovered/Resolved]
  - Glucose tolerance impaired [Unknown]
  - Pneumonia aspiration [Recovered/Resolved]
  - Vomiting [Unknown]
  - Blood glucose decreased [Unknown]
  - Arthritis [Recovered/Resolved]
  - Joint swelling [Recovered/Resolved]
  - General physical condition abnormal [Unknown]
  - Constipation [Unknown]
  - Salivary hypersecretion [Unknown]

NARRATIVE: CASE EVENT DATE: 20140908
